FAERS Safety Report 4808932-7 (Version None)
Quarter: 2005Q4

REPORT INFORMATION
  Report Type: 
  Country: None (occurrence: None)
  Receive Date: 20051024
  Receipt Date: 20051014
  Transmission Date: 20060501
  Serious: Yes (Hospitalization)
  Sender: FDA-Public Use
  Company Number: 6017973

PATIENT
  Age: 70 Year
  Sex: Male

DRUGS (3)
  1. CONCOR 10 (10 MG, TABLET) (BISOPROLOL FUMARATE) [Suspect]
     Indication: ESSENTIAL HYPERTENSION
     Dosage: 5 MG (5 MG, 1 IN 1 D) ORAL
     Route: 048
     Dates: start: 20020101, end: 20050406
  2. MARCUMAR [Suspect]
     Indication: CEREBROVASCULAR DISORDER
     Dosage: (3 MG, AS NECESSARY) INTRAVENOUS DRIP
     Route: 041
     Dates: start: 20020101, end: 20050406
  3. SORTIS (ATORVASTATIN) [Suspect]
     Indication: HYPERLIPIDAEMIA
     Dosage: 40 MG (40 MG, 1 IN 1 D) ORAL
     Route: 048
     Dates: start: 20020101, end: 20050506

REACTIONS (4)
  - ECCHYMOSIS [None]
  - MEGAKARYOCYTES INCREASED [None]
  - OCCUPATIONAL EXPOSURE TO TOXIC AGENT [None]
  - THROMBOCYTOPENIA [None]
